FAERS Safety Report 7871183 (Version 3)
Quarter: 2013Q2

REPORT INFORMATION
  Report Type: Spontaneous
  Country: US (occurrence: US)
  Receive Date: 20110325
  Receipt Date: 20130604
  Transmission Date: 20140414
  Serious: No
  Sender: FDA-Public Use
  Company Number: US-B.I. PHARMACEUTICALS,INC./RIDGEFIELD-2011-BP-05663BP

PATIENT
  Age: 81 Year
  Sex: Male

DRUGS (13)
  1. PRADAXA [Suspect]
     Indication: ATRIAL FIBRILLATION
     Dosage: 300 MG
     Route: 048
     Dates: start: 2009
  2. POTASSIUM [Concomitant]
     Indication: SUPPLEMENTATION THERAPY
     Dosage: 20 MEQ
     Route: 048
     Dates: start: 2008
  3. FUROSEMIDE [Concomitant]
     Indication: FLUID RETENTION
     Dosage: 40 MG
     Route: 048
     Dates: start: 2008
  4. FUROSEMIDE [Concomitant]
     Indication: CARDIAC FAILURE
  5. LEVOTHYROXINE [Concomitant]
     Indication: HYPOTHYROIDISM
     Dosage: 50 MCG
     Route: 048
     Dates: start: 2009
  6. CARVEDILOL [Concomitant]
     Indication: CARDIAC DISORDER
     Dosage: 12.5 MG
     Route: 048
     Dates: start: 2008
  7. CARVEDILOL [Concomitant]
     Indication: CARDIAC FAILURE
  8. AMBIEN [Concomitant]
     Indication: SLEEP DISORDER
     Dosage: 5 MG
     Route: 048
     Dates: start: 2009
  9. AMBIEN [Concomitant]
     Indication: INSOMNIA
  10. CPAP MACHINE [Concomitant]
     Indication: SLEEP APNOEA SYNDROME
  11. ZANTAC GENERIC [Concomitant]
     Indication: NERVOUSNESS
  12. OMEPRAZOLE [Concomitant]
     Indication: NERVOUSNESS
  13. VITAMINS [Concomitant]
     Indication: PROPHYLAXIS

REACTIONS (6)
  - Sensation of foreign body [Not Recovered/Not Resolved]
  - Melaena [Not Recovered/Not Resolved]
  - Paraesthesia [Not Recovered/Not Resolved]
  - Contusion [Not Recovered/Not Resolved]
  - Contusion [Not Recovered/Not Resolved]
  - Penis disorder [Not Recovered/Not Resolved]
